FAERS Safety Report 11693117 (Version 1)
Quarter: 2015Q4

REPORT INFORMATION
  Report Type: Spontaneous
  Country: US (occurrence: None)
  Receive Date: 20151102
  Receipt Date: 20151102
  Transmission Date: 20160304
  Serious: Yes (Hospitalization)
  Sender: FDA-Public Use
  Company Number: None

PATIENT
  Age: 4 Year
  Sex: Female
  Weight: 17.24 kg

DRUGS (2)
  1. AUVI-Q [Suspect]
     Active Substance: EPINEPHRINE
  2. ZYRTEC [Concomitant]
     Active Substance: CETIRIZINE HYDROCHLORIDE

REACTIONS (4)
  - Hypersensitivity [None]
  - Drug ineffective [None]
  - Product quality issue [None]
  - Incorrect dose administered [None]

NARRATIVE: CASE EVENT DATE: 20150727
